FAERS Safety Report 10985034 (Version 1)
Quarter: 2015Q1

REPORT INFORMATION
  Report Type: Spontaneous
  Country: US (occurrence: None)
  Receive Date: 20150312
  Receipt Date: 20150312
  Transmission Date: 20150721
  Serious: Yes (Other)
  Sender: FDA-Public Use
  Company Number: 1000068157

PATIENT
  Age: 40 Year
  Sex: Female
  Weight: 81.65 kg

DRUGS (4)
  1. NUCYNTA [Suspect]
     Active Substance: TAPENTADOL HYDROCHLORIDE
     Indication: NERVE INJURY
     Dosage: 100MG AS NEEDED (AS NEEDED)
     Dates: start: 2010, end: 2011
  2. SAVELLA [Suspect]
     Active Substance: MILNACIPRAN HYDROCHLORIDE
     Indication: PAIN
     Dates: start: 2010, end: 2011
  3. NUCYNTA [Suspect]
     Active Substance: TAPENTADOL HYDROCHLORIDE
     Indication: PAIN
     Dosage: 100MG AS NEEDED (AS NEEDED)
     Dates: start: 2010, end: 2011
  4. SAVELLA [Suspect]
     Active Substance: MILNACIPRAN HYDROCHLORIDE
     Indication: NERVE INJURY
     Dates: start: 2010, end: 2011

REACTIONS (2)
  - Serotonin syndrome [None]
  - Off label use [None]

NARRATIVE: CASE EVENT DATE: 2010
